FAERS Safety Report 8215632 (Version 24)
Quarter: 2016Q1

REPORT INFORMATION
  Report Type: Report from Study
  Country: CA (occurrence: CA)
  Receive Date: 20111031
  Receipt Date: 20160330
  Transmission Date: 20160526
  Serious: Yes (Other)
  Sender: FDA-Public Use
  Company Number: PHHY2011CA92370

PATIENT
  Age: 59 Year
  Sex: Male

DRUGS (3)
  1. SANDOSTATIN LAR DEPOT [Suspect]
     Active Substance: OCTREOTIDE ACETATE
     Indication: ACROMEGALY
     Dosage: 30 MG, QMO
     Route: 030
     Dates: start: 20070124
  2. TESTOSTERONE. [Concomitant]
     Active Substance: TESTOSTERONE
     Indication: PRODUCT USED FOR UNKNOWN INDICATION
  3. TESTOSTERONE. [Concomitant]
     Active Substance: TESTOSTERONE
     Dosage: 100 MG, QW2
     Route: 058

REACTIONS (19)
  - Arthritis [Unknown]
  - Pain in jaw [Unknown]
  - Jaw disorder [Unknown]
  - Incision site infection [Recovering/Resolving]
  - Agitation [Unknown]
  - Dysgeusia [Unknown]
  - Tooth disorder [Unknown]
  - Blood pressure fluctuation [Unknown]
  - Epistaxis [Recovering/Resolving]
  - Arthralgia [Unknown]
  - Fatigue [Unknown]
  - Syringe issue [Unknown]
  - Gout [Unknown]
  - Labyrinthitis [Recovered/Resolved]
  - Body temperature decreased [Unknown]
  - Heart rate decreased [Unknown]
  - Blood pressure increased [Unknown]
  - Toothache [Unknown]
  - Pain in extremity [Unknown]

NARRATIVE: CASE EVENT DATE: 2014
